FAERS Safety Report 8805289 (Version 1)
Quarter: 2012Q4

REPORT INFORMATION
  Report Type: Spontaneous
  Country: US (occurrence: None)
  Receive Date: 20120919
  Receipt Date: 20120919
  Transmission Date: 20130627
  Serious: No
  Sender: FDA-Public Use
  Company Number: None

PATIENT
  Age: 13 Year
  Sex: Female
  Weight: 70 kg

DRUGS (1)
  1. TPN [Suspect]

REACTIONS (3)
  - Drug dispensing error [None]
  - Incorrect dose administered [None]
  - Drug administered at inappropriate site [None]
